FAERS Safety Report 5641903-X (Version None)
Quarter: 2008Q1

REPORT INFORMATION
  Report Type: 
  Country: None (occurrence: None)
  Receive Date: 20080227
  Receipt Date: 20080220
  Transmission Date: 20080703
  Serious: Yes (Disabling)
  Sender: FDA-Public Use
  Company Number: US-PFIZER INC-2008015804

PATIENT

DRUGS (1)
  1. LIPITOR [Suspect]

REACTIONS (2)
  - JOB DISSATISFACTION [None]
  - POLYNEUROPATHY [None]
